FAERS Safety Report 5146967-8 (Version None)
Quarter: 2006Q4

REPORT INFORMATION
  Report Type: 
  Country: None (occurrence: None)
  Receive Date: 20061103
  Receipt Date: 20061023
  Transmission Date: 20070319
  Serious: Yes (Hospitalization, Other)
  Sender: FDA-Public Use
  Company Number: 2006126183

PATIENT
  Age: 71 Year
  Sex: Male

DRUGS (9)
  1. LIPITOR [Suspect]
     Indication: HYPERCHOLESTEROLAEMIA
     Dosage: 10 MG (10 MG, 1 IN 1 D), ORAL
     Route: 048
     Dates: start: 20020101
  2. ANTIBIOTICS (ANTIBIOTICS) [Suspect]
  3. BIAXIN [Suspect]
     Dosage: ORAL
     Route: 048
  4. SYNTHROID [Concomitant]
  5. AVANDIA [Concomitant]
  6. OXAZEPAM [Concomitant]
  7. ASPIRIN [Concomitant]
  8. DIABETA [Concomitant]
  9. ACCURETIC [Concomitant]

REACTIONS (7)
  - BLOOD DISORDER [None]
  - BRONCHITIS [None]
  - CONVULSION [None]
  - DRUG INTERACTION [None]
  - FLATULENCE [None]
  - LUNG DISORDER [None]
  - NASOPHARYNGITIS [None]
